FAERS Safety Report 9770378 (Version 2)
Quarter: 2014Q1

REPORT INFORMATION
  Report Type: Report from Study
  Country: CA (occurrence: CA)
  Receive Date: 20131218
  Receipt Date: 20140220
  Transmission Date: 20141002
  Serious: Yes (Hospitalization, Other)
  Sender: FDA-Public Use
  Company Number: CA-ABBVIE-13P-028-1179341-00

PATIENT
  Sex: Male
  Weight: 86.26 kg

DRUGS (6)
  1. HUMIRA [Suspect]
     Indication: PSORIASIS
     Route: 058
     Dates: start: 20131027, end: 20131116
  2. HUMIRA [Suspect]
     Route: 058
  3. LIPITOR [Concomitant]
     Indication: BLOOD CHOLESTEROL INCREASED
     Route: 048
  4. LIPITOR [Concomitant]
     Indication: PROPHYLAXIS
  5. GLUCOPHAGE [Concomitant]
     Indication: BLOOD CHOLESTEROL INCREASED
     Route: 048
  6. GLUCOPHAGE [Concomitant]
     Indication: PROPHYLAXIS

REACTIONS (11)
  - Nephrolithiasis [Recovered/Resolved]
  - Cardiac disorder [Recovered/Resolved]
  - Kidney infection [Unknown]
  - Pulmonary oedema [Recovered/Resolved]
  - Arrhythmia [Recovered/Resolved]
  - Renal colic [Unknown]
  - Unevaluable event [Recovered/Resolved]
  - Blood pressure increased [Recovered/Resolved]
  - Heart rate increased [Recovered/Resolved]
  - Nephrolithiasis [Recovered/Resolved]
  - Hypertension [Not Recovered/Not Resolved]
